FAERS Safety Report 14008737 (Version 1)
Quarter: 2017Q3

REPORT INFORMATION
  Report Type: Spontaneous
  Country: GB (occurrence: GB)
  Receive Date: 20170925
  Receipt Date: 20170925
  Transmission Date: 20171128
  Serious: Yes (Disabling, Other)
  Sender: FDA-Public Use
  Company Number: GB-PFIZER INC-2017406785

PATIENT
  Age: 52 Year
  Sex: Male
  Weight: 85 kg

DRUGS (5)
  1. DERMOL /01330701/ [Concomitant]
     Dosage: UNK
     Dates: start: 20170808, end: 20170809
  2. DOXYCYCLINE MONOHYDRATE [Suspect]
     Active Substance: DOXYCYCLINE
     Dosage: UNK
  3. TERBINAFINE. [Concomitant]
     Active Substance: TERBINAFINE
     Dosage: 1 DF, 1X/DAY
     Dates: start: 20170706, end: 20170803
  4. HIBISCRUB /00133001/ [Concomitant]
     Dosage: UNK
     Dates: start: 20170808, end: 20170905
  5. BETAMETHASONE VALERATE. [Concomitant]
     Active Substance: BETAMETHASONE VALERATE
     Dosage: 1 DF, 2X/DAY
     Dates: start: 20170907

REACTIONS (5)
  - Lethargy [Recovering/Resolving]
  - Anxiety [Recovering/Resolving]
  - Paranoia [Recovering/Resolving]
  - Depression [Recovering/Resolving]
  - Nightmare [Unknown]
